FAERS Safety Report 7910678-3 (Version None)
Quarter: 2011Q4

REPORT INFORMATION
  Report Type: 
  Country: None (occurrence: None)
  Receive Date: 20111111
  Receipt Date: 20111103
  Transmission Date: 20120403
  Serious: Yes (Other)
  Sender: FDA-Public Use
  Company Number: US-RB-034002-11

PATIENT
  Age: 34 Year
  Sex: Male

DRUGS (1)
  1. SUBOXONE [Suspect]
     Indication: PRODUCT USED FOR UNKNOWN INDICATION
     Dosage: UNKNOWN DOSING DETAILS
     Route: 065

REACTIONS (6)
  - LACK OF SPONTANEOUS SPEECH [None]
  - ANXIETY [None]
  - CONVULSION [None]
  - INTERVERTEBRAL DISC DISORDER [None]
  - HYPOKINESIA [None]
  - SOMNOLENCE [None]
